FAERS Safety Report 9197090 (Version 2)
Quarter: 2013Q4

REPORT INFORMATION
  Report Type: Spontaneous
  Country: US (occurrence: US)
  Receive Date: 20130328
  Receipt Date: 20131127
  Transmission Date: 20140711
  Serious: Yes (Other)
  Sender: FDA-Public Use
  Company Number: US-BAYER-2013-038832

PATIENT
  Age: 27 Year
  Sex: Female

DRUGS (7)
  1. YAZ [Suspect]
  2. YASMIN [Suspect]
  3. OCELLA [Suspect]
  4. PREVACID [Concomitant]
     Dosage: 30 MG, TAKE 1 CAPSULE DAILY
  5. RANITIDINE [Concomitant]
     Dosage: 150 MG, TAKE 2 TABLETS BY MOUTH EVERY NIGHT AT BEDTIME
  6. SINGULAIR [Concomitant]
     Dosage: 10 MG, TAKE 1 TABLET BY MOUTH DAILY
  7. TRAZODONE [Concomitant]
     Dosage: 100 MG, TAKE 1 TABLET BY MOUTH AT NIGHT

REACTIONS (5)
  - Gallbladder injury [None]
  - Cholecystitis chronic [None]
  - Pain [None]
  - Injury [None]
  - Pain [None]
